FAERS Safety Report 23251138 (Version 1)
Quarter: 2023Q4

REPORT INFORMATION
  Report Type: Spontaneous
  Country: US (occurrence: US)
  Receive Date: 20231201
  Receipt Date: 20231201
  Transmission Date: 20240110
  Serious: Yes (Hospitalization, Other)
  Sender: FDA-Public Use
  Company Number: US-AMRYT PHARMACEUTICALS DAC-AEGR006774

PATIENT
  Age: 29 Year
  Sex: Female

DRUGS (1)
  1. METRELEPTIN [Suspect]
     Active Substance: METRELEPTIN
     Indication: Familial partial lipodystrophy

REACTIONS (5)
  - Pancreatitis relapsing [Unknown]
  - Vascular pseudoaneurysm [Unknown]
  - Splenic infarction [Unknown]
  - Off label use [Unknown]
  - Treatment noncompliance [Unknown]
